FAERS Safety Report 9965025 (Version 1)
Quarter: 2014Q1

REPORT INFORMATION
  Report Type: Report from Study
  Country: US (occurrence: US)
  Receive Date: 20140305
  Receipt Date: 20140305
  Transmission Date: 20141002
  Serious: No
  Sender: FDA-Public Use
  Company Number: US-ABBVIE-13P-163-1128837-00

PATIENT
  Age: 52 Year
  Sex: Female

DRUGS (9)
  1. HUMIRA [Suspect]
     Indication: CROHN^S DISEASE
     Dates: start: 201204, end: 201307
  2. HUMIRA [Suspect]
     Dates: start: 201307
  3. AZATHIOPRINE [Concomitant]
     Indication: CROHN^S DISEASE
  4. LANTUS [Concomitant]
     Indication: DIABETES MELLITUS
     Dosage: EVERY MORNING
     Route: 058
  5. HUMALOG [Concomitant]
     Indication: DIABETES MELLITUS
     Dosage: AS NEEDED 3 TIMES DAILY
     Route: 058
  6. ADVAIR [Concomitant]
     Indication: BRONCHIAL DISORDER
  7. OPANA [Concomitant]
     Indication: PAIN
  8. OXYCODONE [Concomitant]
     Indication: PAIN
     Dosage: 1 TABLET EVERY 4 HOURS AS NEEDED
  9. PHENERGAN [Concomitant]
     Indication: NAUSEA
     Dosage: AS NEEDED

REACTIONS (5)
  - Gait disturbance [Not Recovered/Not Resolved]
  - Drug ineffective [Not Recovered/Not Resolved]
  - Arthralgia [Not Recovered/Not Resolved]
  - Arthritis [Not Recovered/Not Resolved]
  - Inappropriate schedule of drug administration [Not Recovered/Not Resolved]
